FAERS Safety Report 23026028 (Version 1)
Quarter: 2023Q4

REPORT INFORMATION
  Report Type: Spontaneous
  Country: GB (occurrence: GB)
  Receive Date: 20231004
  Receipt Date: 20231004
  Transmission Date: 20240110
  Serious: Yes (Other)
  Sender: FDA-Public Use
  Company Number: GB-MHRA-TPP45848851C9182431YC1695384405502

PATIENT
  Age: 62 Year
  Sex: Female
  Weight: 61 kg

DRUGS (5)
  1. NITROFURANTOIN [Suspect]
     Active Substance: NITROFURANTOIN
     Indication: Urinary tract infection
     Dosage: UNK
     Route: 065
     Dates: start: 20221116, end: 20230721
  2. AMOXICILLIN [Concomitant]
     Active Substance: AMOXICILLIN
     Indication: Product used for unknown indication
     Dosage: 1 DOSAGE FORM, 3 TIMES A DAY
     Route: 065
     Dates: start: 20230719, end: 20230724
  3. ESTRADIOL [Concomitant]
     Active Substance: ESTRADIOL
     Indication: Product used for unknown indication
     Dosage: 1 DOSAGE FORM, ONCE A DAY (INSERT ONE PESSARY INTO THE VAGINA EACH EVENING)
     Route: 065
     Dates: start: 20220909
  4. PREDNISOLONE [Concomitant]
     Active Substance: PREDNISOLONE
     Indication: Product used for unknown indication
     Dosage: 8 DOSAGE FORM, ONCE A DAY
     Route: 065
     Dates: start: 20230719, end: 20230724
  5. ALBUTEROL [Concomitant]
     Active Substance: ALBUTEROL
     Indication: Product used for unknown indication
     Dosage: 2 DOSAGE FORM (2 PUFFS AS NEEDED VIA AEROCHAMBER)
     Route: 065
     Dates: start: 20230818

REACTIONS (2)
  - Dyspnoea [Not Recovered/Not Resolved]
  - Painful respiration [Not Recovered/Not Resolved]

NARRATIVE: CASE EVENT DATE: 20230411
